FAERS Safety Report 6656636-0 (Version None)
Quarter: 2010Q1

REPORT INFORMATION
  Report Type: 
  Country: None (occurrence: None)
  Receive Date: 20100329
  Receipt Date: 20100315
  Transmission Date: 20100710
  Serious: Yes (Other)
  Sender: FDA-Public Use
  Company Number: GB-ELI_LILLY_AND_COMPANY-GB201003004807

PATIENT
  Sex: Male

DRUGS (1)
  1. ZYPREXA [Suspect]
     Dates: start: 19980101

REACTIONS (10)
  - ALOPECIA [None]
  - BLOOD DISORDER [None]
  - CARDIAC DISORDER [None]
  - JOINT SWELLING [None]
  - MALAISE [None]
  - OEDEMA PERIPHERAL [None]
  - PARANOIA [None]
  - SOMNOLENCE [None]
  - URINE ABNORMALITY [None]
  - WEIGHT INCREASED [None]
